FAERS Safety Report 23647550 (Version 1)
Quarter: 2024Q1

REPORT INFORMATION
  Report Type: Spontaneous
  Country: US (occurrence: None)
  Receive Date: 20240318
  Receipt Date: 20240318
  Transmission Date: 20240410
  Serious: Yes (Other)
  Sender: FDA-Public Use
  Company Number: None

PATIENT
  Age: 43 Year
  Sex: Male
  Weight: 99 kg

DRUGS (6)
  1. PAROXETINE [Suspect]
     Active Substance: PAROXETINE
     Indication: Depression
     Dosage: OTHER QUANTITY : .5 TABLET(S);?FREQUENCY : AT BEDTIME;?
     Route: 048
     Dates: start: 20240305, end: 20240317
  2. PAROXETINE [Suspect]
     Active Substance: PAROXETINE
     Indication: Anxiety
  3. PREGABALIN [Concomitant]
     Active Substance: PREGABALIN
  4. propanonol testosterone gel 1.6 [Concomitant]
  5. LORAZEPAM [Concomitant]
     Active Substance: LORAZEPAM
  6. multi vit. [Concomitant]

REACTIONS (3)
  - Urticaria [None]
  - Gastrointestinal haemorrhage [None]
  - Cognitive disorder [None]

NARRATIVE: CASE EVENT DATE: 20240316
